FAERS Safety Report 21176987 (Version 6)
Quarter: 2025Q4

REPORT INFORMATION
  Report Type: Spontaneous
  Country: GB (occurrence: GB)
  Receive Date: 20220805
  Receipt Date: 20251218
  Transmission Date: 20260118
  Serious: Yes (Hospitalization)
  Sender: TAKEDA
  Company Number: GB-TAKEDA-2021TUS015120

PATIENT
  Sex: Female

DRUGS (22)
  1. IXAZOMIB [Suspect]
     Active Substance: IXAZOMIB
     Indication: Plasma cell myeloma refractory
     Dosage: 2.3 MILLIGRAM, 1/WEEK
     Dates: start: 201805
  2. IXAZOMIB [Suspect]
     Active Substance: IXAZOMIB
     Dosage: 2.5 MILLIGRAM, 1/WEEK
     Dates: start: 201805
  3. IXAZOMIB [Suspect]
     Active Substance: IXAZOMIB
     Dosage: 2.5 MILLIGRAM, 1/WEEK
  4. IXAZOMIB [Suspect]
     Active Substance: IXAZOMIB
     Dosage: 5 MILLIGRAM, 1/WEEK
  5. IXAZOMIB [Suspect]
     Active Substance: IXAZOMIB
     Dosage: 1 MILLIGRAM, 1/WEEK
  6. IXAZOMIB [Suspect]
     Active Substance: IXAZOMIB
     Dosage: 1 MILLIGRAM, 1/WEEK
  7. IXAZOMIB [Suspect]
     Active Substance: IXAZOMIB
     Dosage: 2.5 MILLIGRAM, 1/WEEK
  8. IXAZOMIB [Suspect]
     Active Substance: IXAZOMIB
     Dosage: 5 MILLIGRAM, 1/WEEK
  9. IXAZOMIB [Suspect]
     Active Substance: IXAZOMIB
     Dosage: 1 MILLIGRAM, 1/WEEK
  10. IXAZOMIB [Suspect]
     Active Substance: IXAZOMIB
     Dosage: 2.5 MILLIGRAM, 1/WEEK
  11. IXAZOMIB [Suspect]
     Active Substance: IXAZOMIB
     Dosage: 5 MILLIGRAM, 1/WEEK
  12. IXAZOMIB [Suspect]
     Active Substance: IXAZOMIB
     Dosage: 3 MILLIGRAM
  13. IXAZOMIB [Suspect]
     Active Substance: IXAZOMIB
     Dosage: UNK
  14. DEXAMETHASONE [Suspect]
     Active Substance: DEXAMETHASONE
     Indication: Plasma cell myeloma refractory
     Dosage: 10 MILLIGRAM
  15. LANSOPRAZOLE [Suspect]
     Active Substance: LANSOPRAZOLE
     Indication: Product used for unknown indication
     Dosage: 30 MILLIGRAM, QD
  16. LANSOPRAZOLE [Suspect]
     Active Substance: LANSOPRAZOLE
     Dosage: 3 MILLIGRAM
  17. ACYCLOVIR [Suspect]
     Active Substance: ACYCLOVIR
     Indication: Product used for unknown indication
     Dosage: 800 MILLIGRAM, QD
  18. REVLIMID [Suspect]
     Active Substance: LENALIDOMIDE
     Indication: Plasma cell myeloma refractory
     Dosage: 10 MILLIGRAM, Q3WEEKS
  19. REVLIMID [Suspect]
     Active Substance: LENALIDOMIDE
     Dosage: 10 MILLIGRAM, QD
     Dates: start: 201805
  20. METOCLOPRAMIDE [Suspect]
     Active Substance: METOCLOPRAMIDE
     Indication: Product used for unknown indication
     Dosage: 10 MILLIGRAM, QD
  21. LOPERAMIDE [Suspect]
     Active Substance: LOPERAMIDE
     Indication: Product used for unknown indication
     Dosage: 2 MILLIGRAM
  22. DEXAMETHASONE [Concomitant]
     Active Substance: DEXAMETHASONE
     Indication: Product used for unknown indication
     Dosage: 10 MILLIGRAM

REACTIONS (7)
  - Chronic obstructive pulmonary disease [Unknown]
  - Panic attack [Not Recovered/Not Resolved]
  - Swelling [Unknown]
  - Peripheral swelling [Unknown]
  - Pain [Not Recovered/Not Resolved]
  - Product dose omission issue [Unknown]
  - Inappropriate schedule of product administration [Unknown]
